FAERS Safety Report 8612325-4 (Version None)
Quarter: 2012Q3

REPORT INFORMATION
  Report Type: 
  Country: None (occurrence: None)
  Receive Date: 20120810
  Receipt Date: 20120810
  Transmission Date: 20120928
  Serious: Yes (Hospitalization)
  Sender: FDA-Public Use
  Company Number: None

PATIENT
  Age: 76 Year
  Sex: Male
  Weight: 114 kg

DRUGS (2)
  1. RIVAROXABAN 15MG JANSSEN [Suspect]
     Indication: ANTICOAGULANT THERAPY
     Dosage: 15MG ONCE DAILY PO
     Route: 048
     Dates: start: 20120622, end: 20120801
  2. RIVAROXABAN 15MG JANSSEN [Suspect]
     Indication: ATRIAL FIBRILLATION
     Dosage: 15MG ONCE DAILY PO
     Route: 048
     Dates: start: 20120622, end: 20120801

REACTIONS (2)
  - TREATMENT NONCOMPLIANCE [None]
  - PULMONARY EMBOLISM [None]
